FAERS Safety Report 6733106-2 (Version None)
Quarter: 2010Q2

REPORT INFORMATION
  Report Type: 
  Country: None (occurrence: None)
  Receive Date: 20100518
  Receipt Date: 20100506
  Transmission Date: 20101027
  Serious: Yes (Death, Hospitalization)
  Sender: FDA-Public Use
  Company Number: 2009AC000055

PATIENT
  Age: 36 Year
  Sex: Female

DRUGS (31)
  1. DIGOXIN [Suspect]
     Indication: MITRAL VALVE INCOMPETENCE
     Dosage: 0.25 MG;QD;PO
     Route: 048
     Dates: start: 20000427
  2. DIGOXIN [Suspect]
     Dosage: .25 MG;QD;PO
     Route: 048
     Dates: start: 20060101, end: 20080303
  3. DIGOXIN [Suspect]
     Dosage: .25 MG;QD;IV
     Route: 042
     Dates: start: 20080304, end: 20080305
  4. DIGOXIN [Suspect]
     Dosage: .125 MG;QD;IV
     Route: 042
     Dates: start: 20080306, end: 20080311
  5. HYDROCODONE [Concomitant]
  6. PROPOXYPHEN [Concomitant]
  7. SULFAMETHOXAZOLE [Concomitant]
  8. FUROSEMIDE [Concomitant]
  9. CIPROFLOXACIN [Concomitant]
  10. KLOR-CON [Concomitant]
  11. POTASSIUM [Concomitant]
  12. WARFARIN SODIUM [Concomitant]
  13. CITALOPRAM [Concomitant]
  14. GLYBURIDE [Concomitant]
  15. IODOFORM [Concomitant]
  16. BACTRIM [Concomitant]
  17. DOPAMINE HCL [Concomitant]
  18. LEVOPHED [Concomitant]
  19. NEO-SYNEPHRINOL [Concomitant]
  20. VASOPRESSIN [Concomitant]
  21. DICLOXACILLIN [Concomitant]
  22. POTASSIUM CHLORIDE [Concomitant]
  23. VANCOMYCIN [Concomitant]
  24. PHYTONADIONE [Concomitant]
  25. ALBUTEROL [Concomitant]
  26. ZOSYN [Concomitant]
  27. AZITHROMYCIN [Concomitant]
  28. CEFPODOXIME PROXETIL [Concomitant]
  29. CELEXA [Concomitant]
  30. REMERON [Concomitant]
  31. ALDACTONE [Concomitant]

REACTIONS (35)
  - ANHEDONIA [None]
  - ATRIOVENTRICULAR BLOCK COMPLETE [None]
  - ATRIOVENTRICULAR SEPTAL DEFECT [None]
  - CARDIOACTIVE DRUG LEVEL INCREASED [None]
  - CARDIOMEGALY [None]
  - DECREASED APPETITE [None]
  - DEPRESSED MOOD [None]
  - DIABETES MELLITUS [None]
  - DISEASE COMPLICATION [None]
  - DYSPHAGIA [None]
  - ECONOMIC PROBLEM [None]
  - FAILURE TO THRIVE [None]
  - FURUNCLE [None]
  - HAEMATOCRIT DECREASED [None]
  - HAEMOGLOBIN DECREASED [None]
  - HYPOPHAGIA [None]
  - INTERNATIONAL NORMALISED RATIO INCREASED [None]
  - LETHARGY [None]
  - MAJOR DEPRESSION [None]
  - MALNUTRITION [None]
  - MULTIPLE INJURIES [None]
  - OEDEMA PERIPHERAL [None]
  - OROPHARYNGEAL PAIN [None]
  - PLEURAL EFFUSION [None]
  - PNEUMONIA ASPIRATION [None]
  - PULSE ABSENT [None]
  - PUPILLARY DISORDER [None]
  - PYELOCALIECTASIS [None]
  - RENAL FAILURE ACUTE [None]
  - RESPIRATORY FAILURE [None]
  - SPUTUM DISCOLOURED [None]
  - STAPHYLOCOCCAL INFECTION [None]
  - SUBCUTANEOUS ABSCESS [None]
  - TYPE 2 DIABETES MELLITUS [None]
  - WEIGHT DECREASED [None]
